FAERS Safety Report 10223399 (Version 1)
Quarter: 2014Q2

REPORT INFORMATION
  Report Type: Spontaneous
  Country: US (occurrence: US)
  Receive Date: 20140609
  Receipt Date: 20140609
  Transmission Date: 20141212
  Serious: No
  Sender: FDA-Public Use
  Company Number: US-ASTRAZENECA-2014SE37001

PATIENT
  Age: 58 Year
  Sex: Female
  Weight: 62.1 kg

DRUGS (1)
  1. ARIMIDEX [Suspect]
     Route: 048
     Dates: start: 201403

REACTIONS (2)
  - Musculoskeletal pain [Recovered/Resolved]
  - Pain [Unknown]
